FAERS Safety Report 5663338-6 (Version None)
Quarter: 2008Q1

REPORT INFORMATION
  Report Type: 
  Country: None (occurrence: None)
  Receive Date: 20080313
  Receipt Date: 20080304
  Transmission Date: 20080703
  Serious: Yes (Hospitalization, Other)
  Sender: FDA-Public Use
  Company Number: US-ELI_LILLY_AND_COMPANY-US200803000604

PATIENT
  Sex: Male

DRUGS (10)
  1. HUMALOG [Suspect]
     Route: 058
  2. MORPHINE SULFATE [Concomitant]
  3. LYRICA [Concomitant]
  4. CITALOPRAM [Concomitant]
  5. CRESTOR [Concomitant]
  6. HYZAAR [Concomitant]
  7. LEVOTHYROXINE SODIUM [Concomitant]
  8. LISINOPRIL [Concomitant]
  9. METOPROLOL SUCCINATE [Concomitant]
  10. PLAVIX [Concomitant]

REACTIONS (4)
  - BLOOD GLUCOSE DECREASED [None]
  - BLOOD GLUCOSE INCREASED [None]
  - INFLUENZA [None]
  - LOSS OF CONSCIOUSNESS [None]
